FAERS Safety Report 20391482 (Version 1)
Quarter: 2022Q1

REPORT INFORMATION
  Report Type: Spontaneous
  Country: US (occurrence: US)
  Receive Date: 20220128
  Receipt Date: 20220128
  Transmission Date: 20220423
  Serious: Yes (Life-Threatening, Hospitalization, Other)
  Sender: FDA-Public Use
  Company Number: US-MLMSERVICE-20220118-3324320-1

PATIENT
  Age: 84 Year
  Sex: Female

DRUGS (10)
  1. VERAPAMIL HCL [Interacting]
     Active Substance: VERAPAMIL HYDROCHLORIDE
     Indication: Hypertension
     Dosage: 120 MG, 1X/DAY
  2. FLUCONAZOLE [Interacting]
     Active Substance: FLUCONAZOLE
     Indication: Intertrigo
     Dosage: 100 MG, 1X/DAY
     Route: 048
  3. FLUCONAZOLE [Interacting]
     Active Substance: FLUCONAZOLE
     Indication: Cellulitis
  4. CEPHALEXIN [Concomitant]
     Active Substance: CEPHALEXIN
     Indication: Intertrigo
     Dosage: 500 MG, 2X/DAY
  5. CEPHALEXIN [Concomitant]
     Active Substance: CEPHALEXIN
     Indication: Cellulitis
  6. PROPRANOLOL [Concomitant]
     Active Substance: PROPRANOLOL HYDROCHLORIDE
     Indication: Hypertension
     Dosage: 40 MG, 2X/DAY
  7. DUONEB [Concomitant]
     Active Substance: ALBUTEROL SULFATE\IPRATROPIUM BROMIDE
     Dosage: UNK
     Route: 055
  8. COUMADIN [Concomitant]
     Active Substance: WARFARIN SODIUM
     Dosage: UNK
  9. TINACTIN [Concomitant]
     Active Substance: TOLNAFTATE
     Indication: Cellulitis
     Dosage: POWDER, TWICE DAILY
  10. CEFAZOLIN [Concomitant]
     Active Substance: CEFAZOLIN
     Dosage: 1 G, 3X/DAY (EVERY 8 HRS)

REACTIONS (7)
  - Acute kidney injury [Recovering/Resolving]
  - Sinus bradycardia [Recovered/Resolved]
  - Hypotension [Recovered/Resolved]
  - Metabolic acidosis [Recovering/Resolving]
  - Atrioventricular block first degree [Recovered/Resolved]
  - Drug interaction [Recovering/Resolving]
  - Hyperkalaemia [Recovering/Resolving]
